FAERS Safety Report 9193210 (Version 3)
Quarter: 2013Q3

REPORT INFORMATION
  Report Type: Spontaneous
  Country: US (occurrence: US)
  Receive Date: 20130327
  Receipt Date: 20130724
  Transmission Date: 20140515
  Serious: No
  Sender: FDA-Public Use
  Company Number: US-009507513-1303USA006590

PATIENT
  Age: 17 Year
  Sex: Female
  Weight: 90.7 kg

DRUGS (1)
  1. NEXPLANON [Suspect]
     Indication: CONTRACEPTION
     Dosage: UNK
     Route: 059
     Dates: start: 20130228, end: 20130405

REACTIONS (3)
  - Skin discomfort [Recovered/Resolved]
  - Pain in extremity [Recovered/Resolved]
  - Device deployment issue [Recovered/Resolved]
